FAERS Safety Report 8236607-3 (Version None)
Quarter: 2012Q1

REPORT INFORMATION
  Report Type: 
  Country: None (occurrence: None)
  Receive Date: 20120326
  Receipt Date: 20120326
  Transmission Date: 20120608
  Serious: Yes (Other)
  Sender: FDA-Public Use
  Company Number: None

PATIENT
  Age: 80 Year
  Sex: Female
  Weight: 50.8029 kg

DRUGS (1)
  1. BONIVA [Suspect]
     Indication: OSTEOPOROSIS
     Dosage: 1 TABLET 1 PER MONTH
     Dates: start: 20101220

REACTIONS (4)
  - PAIN [None]
  - ARTHRALGIA [None]
  - MUSCULOSKELETAL DISORDER [None]
  - NEURALGIA [None]
